FAERS Safety Report 6238425-4 (Version None)
Quarter: 2009Q2

REPORT INFORMATION
  Report Type: 
  Country: None (occurrence: None)
  Receive Date: 20090622
  Receipt Date: 20090615
  Transmission Date: 20091009
  Serious: Yes (Hospitalization)
  Sender: FDA-Public Use
  Company Number: BR-BIOGENIDEC-2009BI018494

PATIENT
  Age: 51 Year
  Sex: Female

DRUGS (4)
  1. AVONEX [Suspect]
     Indication: MULTIPLE SCLEROSIS
     Route: 030
     Dates: start: 20030101
  2. EUTHYROX [Concomitant]
  3. ATENOL [Concomitant]
     Indication: ARRHYTHMIA
  4. UNSPECIFIED MEDICINE [Concomitant]
     Indication: ANTIDEPRESSANT THERAPY

REACTIONS (8)
  - FALL [None]
  - FATIGUE [None]
  - FOOT FRACTURE [None]
  - HAEMORRHAGE [None]
  - INFLUENZA LIKE ILLNESS [None]
  - MULTIPLE SCLEROSIS RELAPSE [None]
  - OVARIAN CYST [None]
  - PAIN [None]
